FAERS Safety Report 10052104 (Version 1)
Quarter: 2014Q2

REPORT INFORMATION
  Report Type: Spontaneous
  Country: US (occurrence: None)
  Receive Date: 20140401
  Receipt Date: 20140401
  Transmission Date: 20141212
  Serious: Yes (Other)
  Sender: FDA-Public Use
  Company Number: None

PATIENT
  Sex: Female

DRUGS (1)
  1. KCL [Suspect]
     Indication: HYPOKALAEMIA
     Dates: start: 20140328

REACTIONS (5)
  - Vision blurred [None]
  - Dizziness [None]
  - Lethargy [None]
  - Pallor [None]
  - Presyncope [None]
